FAERS Safety Report 4974530-8 (Version None)
Quarter: 2006Q2

REPORT INFORMATION
  Report Type: 
  Country: None (occurrence: None)
  Receive Date: 20060410
  Receipt Date: 20060327
  Transmission Date: 20061013
  Serious: Yes (Hospitalization, Other)
  Sender: FDA-Public Use
  Company Number: 2006042783

PATIENT
  Age: 45 Year
  Sex: Male

DRUGS (3)
  1. VIAGRA [Suspect]
     Indication: ERECTILE DYSFUNCTION
  2. ANTIBIOTICS NOS [Concomitant]
     Indication: LUNG INFECTION
  3. NITROGLYCERIN [Suspect]
     Indication: ILL-DEFINED DISORDER
     Dosage: SUBLINGUAL
     Route: 060
     Dates: start: 20050101

REACTIONS (8)
  - BURNING SENSATION [None]
  - CHEST DISCOMFORT [None]
  - DRUG INEFFECTIVE [None]
  - HEART RATE DECREASED [None]
  - LOSS OF CONSCIOUSNESS [None]
  - LUNG INFECTION [None]
  - MUSCULOSKELETAL CHEST PAIN [None]
  - SCREAMING [None]
